FAERS Safety Report 5839747-9 (Version None)
Quarter: 2008Q3

REPORT INFORMATION
  Report Type: 
  Country: None (occurrence: None)
  Receive Date: 20080811
  Receipt Date: 20080807
  Transmission Date: 20090109
  Serious: Yes (Hospitalization)
  Sender: FDA-Public Use
  Company Number: AU-BRISTOL-MYERS SQUIBB COMPANY-14292528

PATIENT
  Age: 80 Year
  Sex: Female

DRUGS (4)
  1. AMIKACIN SULFATE [Suspect]
     Indication: UPPER RESPIRATORY TRACT INFECTION
     Dates: start: 20060615
  2. MEROPENEM [Suspect]
     Indication: UPPER RESPIRATORY TRACT INFECTION
     Dates: start: 20060615
  3. NEXIUM [Concomitant]
     Dosage: TABLET
     Route: 048
  4. MIXTARD HUMAN 70/30 [Concomitant]
     Indication: DIABETES MELLITUS

REACTIONS (3)
  - CONVULSION [None]
  - TONGUE BITING [None]
  - URINARY INCONTINENCE [None]
